FAERS Safety Report 5572320-9 (Version None)
Quarter: 2007Q4

REPORT INFORMATION
  Report Type: 
  Country: None (occurrence: None)
  Receive Date: 20071219
  Receipt Date: 20071212
  Transmission Date: 20080405
  Serious: Yes (Other)
  Sender: FDA-Public Use
  Company Number: THQ2007A00285

PATIENT
  Age: 72 Year
  Sex: Male

DRUGS (11)
  1. PROCREN DEPOT INJECTION (LEUPROLIDE ACETATE) (INJECTION) [Suspect]
     Indication: PROSTATE CANCER
     Dosage: 11.25 MG (11.25 MG, 1 IN 3 M) SUBCUTANEOUS
     Route: 058
     Dates: start: 20050510, end: 20070314
  2. ELIGARD [Suspect]
     Indication: PROSTATE CANCER
     Dosage: 22.5 MG (22.5 MG, 1 IN 3 M) SUBCUTANEOUS
     Route: 058
     Dates: start: 20070301, end: 20070301
  3. PERINDOPRIL (TABLETS) [Concomitant]
  4. SPIRONOLACTONE [Concomitant]
  5. METFORMIN HCL [Concomitant]
  6. ACETYLSALICYLIC ACID SRT [Concomitant]
  7. ZINKLET [Concomitant]
  8. CARVEDILOL (TABLETS) [Concomitant]
  9. GLIMEPIRIDE [Concomitant]
  10. HJERTEMAGNYL [Concomitant]
  11. FUROSEMIDE [Concomitant]

REACTIONS (6)
  - DISCOMFORT [None]
  - ECCHYMOSIS [None]
  - ECZEMA [None]
  - PRURITUS [None]
  - RASH [None]
  - SKIN HAEMORRHAGE [None]
